FAERS Safety Report 6928497-3 (Version None)
Quarter: 2010Q3

REPORT INFORMATION
  Report Type: 
  Country: None (occurrence: None)
  Receive Date: 20100817
  Receipt Date: 20100805
  Transmission Date: 20110219
  Serious: Yes (Hospitalization, Other)
  Sender: FDA-Public Use
  Company Number: DE-PFIZER INC-2010080051

PATIENT
  Age: 62 Year
  Sex: Female
  Weight: 105 kg

DRUGS (9)
  1. EPIRUBICIN HYDROCHLORIDE [Suspect]
     Indication: BREAST CANCER FEMALE
     Dosage: 200 MG, EVERY 3 WEEKS
     Route: 042
     Dates: start: 20100609, end: 20100609
  2. CLINDAMYCIN HCL [Suspect]
     Indication: WOUND INFECTION
     Dosage: 600 MG, 3X/DAY
     Route: 048
     Dates: start: 20100316, end: 20100415
  3. CIPRO [Suspect]
     Indication: POSTOPERATIVE WOUND INFECTION
     Dosage: 500 MG, 2X/DAY
     Route: 048
     Dates: start: 20100416, end: 20100519
  4. CIPRO [Suspect]
     Dosage: 250 MG, 2X/DAY
     Route: 048
     Dates: start: 20100520, end: 20100531
  5. CYCLOPHOSPHAMIDE [Suspect]
     Indication: BREAST CANCER FEMALE
     Dosage: 1000 MG EVERY 3 WEEKS
     Route: 042
     Dates: start: 20100609, end: 20100609
  6. FLUOROURACIL [Suspect]
     Indication: BREAST CANCER FEMALE
     Dosage: 1000 MG, EVERY 3 WEEKS
     Route: 042
     Dates: start: 20100609, end: 20100609
  7. PALONOSETRON [Suspect]
     Indication: PROPHYLAXIS OF NAUSEA AND VOMITING
     Dosage: 0.25 MG, 1X/DAY
     Route: 042
     Dates: start: 20100609, end: 20100609
  8. UROMITEXAN [Suspect]
     Indication: PROPHYLAXIS
     Dosage: 1050 MG, 1X/DAY
     Route: 042
     Dates: start: 20100609, end: 20100609
  9. DEXAMETHASONE [Suspect]
     Indication: PROPHYLAXIS
     Dosage: 8 MIO. I.E.
     Route: 042
     Dates: start: 20100612, end: 20100612

REACTIONS (1)
  - COLITIS ISCHAEMIC [None]
